FAERS Safety Report 23925635 (Version 1)
Quarter: 2024Q2

REPORT INFORMATION
  Report Type: Spontaneous
  Country: US (occurrence: None)
  Receive Date: 20240531
  Receipt Date: 20240531
  Transmission Date: 20240716
  Serious: Yes (Hospitalization)
  Sender: FDA-Public Use
  Company Number: None

PATIENT
  Age: 80 Year
  Sex: Male
  Weight: 78 kg

DRUGS (3)
  1. FLUOROURACIL [Suspect]
     Active Substance: FLUOROURACIL
  2. LEUCOVORIN CALCIUM [Suspect]
     Active Substance: LEUCOVORIN CALCIUM
  3. ELOXATIN [Concomitant]
     Active Substance: OXALIPLATIN

REACTIONS (18)
  - Neutropenia [None]
  - Nausea [None]
  - Asthenia [None]
  - Weight decreased [None]
  - Dry mouth [None]
  - Decreased appetite [None]
  - Dehydration [None]
  - Dizziness [None]
  - Food intolerance [None]
  - Dysgeusia [None]
  - Red blood cell count decreased [None]
  - Haemoglobin decreased [None]
  - Haematocrit decreased [None]
  - Platelet count decreased [None]
  - Blood urea increased [None]
  - Blood creatinine increased [None]
  - Blood glucose increased [None]
  - Failure to thrive [None]

NARRATIVE: CASE EVENT DATE: 20240524
